FAERS Safety Report 9254335 (Version 1)
Quarter: 2013Q2

REPORT INFORMATION
  Report Type: Spontaneous
  Country: US (occurrence: None)
  Receive Date: 20130422
  Receipt Date: 20130422
  Transmission Date: 20140414
  Serious: Yes (Hospitalization, Other)
  Sender: FDA-Public Use
  Company Number: None

PATIENT
  Age: 67 Year
  Sex: Male
  Weight: 44.1 kg

DRUGS (2)
  1. AMPICILLIN/SULBACTAM [Suspect]
     Indication: UPPER RESPIRATORY TRACT INFECTION
     Route: 042
     Dates: start: 20130101, end: 20130102
  2. PIPERACILLIN/TAZOBACTAM [Suspect]
     Route: 042
     Dates: start: 20130102, end: 20130106

REACTIONS (3)
  - Nephritis [None]
  - Renal failure [None]
  - Dialysis [None]
